FAERS Safety Report 4847662-2 (Version None)
Quarter: 2005Q4

REPORT INFORMATION
  Report Type: 
  Country: None (occurrence: None)
  Receive Date: 20051205
  Receipt Date: 20051118
  Transmission Date: 20060501
  Serious: Yes (Death, Hospitalization, Other)
  Sender: FDA-Public Use
  Company Number: 2005112859

PATIENT
  Age: 75 Year
  Sex: Female

DRUGS (7)
  1. ATORVASTATIN CALCIUM [Suspect]
     Indication: ILL-DEFINED DISORDER
  2. ASPIRIN [Suspect]
     Indication: ILL-DEFINED DISORDER
  3. LANSOPRAZOLE [Suspect]
     Indication: ILL-DEFINED DISORDER
  4. LISINOPRIL [Suspect]
     Indication: HYPERTENSION
  5. ATENOLOL [Suspect]
     Indication: ILL-DEFINED DISORDER
  6. FUROSEMIDE [Suspect]
     Indication: ILL-DEFINED DISORDER
  7. NITROGLYCERIN [Concomitant]

REACTIONS (11)
  - ACUTE MYOCARDIAL INFARCTION [None]
  - COLON CANCER [None]
  - COLONIC POLYP [None]
  - GASTROINTESTINAL HAEMORRHAGE [None]
  - LARYNGEAL OEDEMA [None]
  - LARYNGOSPASM [None]
  - LOWER RESPIRATORY TRACT INFECTION [None]
  - NARCOTIC INTOXICATION [None]
  - NEUROMUSCULAR BLOCKADE [None]
  - OVERDOSE [None]
  - PULMONARY OEDEMA [None]
